FAERS Safety Report 10009465 (Version 2)
Quarter: 2014Q1

REPORT INFORMATION
  Report Type: Spontaneous
  Country: US (occurrence: US)
  Receive Date: 20140313
  Receipt Date: 20140313
  Transmission Date: 20141002
  Serious: Yes (Other)
  Sender: FDA-Public Use
  Company Number: US-INCYTE CORPORATION-2012IN001360

PATIENT
  Age: 77 Year
  Sex: Male

DRUGS (3)
  1. JAKAFI [Suspect]
     Indication: MYELOFIBROSIS
     Dosage: 25 MG, BID
     Route: 048
     Dates: start: 20120314
  2. HYDREA [Suspect]
     Indication: LEUKOCYTOSIS
     Dosage: 500 MG, BID
     Route: 048
     Dates: start: 20120710, end: 20120724
  3. HYDREA [Suspect]
     Dosage: 500 MG, QD
     Route: 048
     Dates: start: 2012

REACTIONS (2)
  - Platelet count decreased [Unknown]
  - Leukocytosis [Unknown]
